FAERS Safety Report 9738978 (Version 2)
Quarter: 2014Q1

REPORT INFORMATION
  Report Type: Spontaneous
  Country: FR (occurrence: FR)
  Receive Date: 20131209
  Receipt Date: 20140113
  Transmission Date: 20141002
  Serious: Yes (Other)
  Sender: FDA-Public Use
  Company Number: PHHY2013FR142818

PATIENT
  Age: 70 Year
  Sex: Male

DRUGS (3)
  1. LEPONEX [Suspect]
     Dosage: 12.5 MG, QD
     Route: 048
     Dates: start: 20131105, end: 20131110
  2. LEPONEX [Suspect]
     Dosage: 25 MG, QD
     Route: 048
     Dates: start: 20131110, end: 20131115
  3. LEPONEX [Suspect]
     Dosage: 12.5 MG, PER DAY
     Route: 048
     Dates: start: 20131116

REACTIONS (3)
  - Hallucination [Recovered/Resolved]
  - Confusional state [Recovered/Resolved]
  - Somnolence [Recovered/Resolved]
